FAERS Safety Report 4492858-5 (Version None)
Quarter: 2004Q4

REPORT INFORMATION
  Report Type: 
  Country: None (occurrence: None)
  Receive Date: 20041102
  Receipt Date: 20041102
  Transmission Date: 20050328
  Serious: Yes (Hospitalization)
  Sender: FDA-Public Use
  Company Number: None

PATIENT
  Age: 82 Year
  Sex: Male

DRUGS (5)
  1. WARFARIN SODIUM [Suspect]
     Indication: ANTICOAGULANT THERAPY
     Dosage: 5 MG DAILY ORAL
     Route: 048
  2. AMLODIPINE [Concomitant]
  3. ZOLPIDEM [Concomitant]
  4. POTASSIUM CHLORIDE [Concomitant]
  5. ACETAMINOPHEN [Concomitant]

REACTIONS (4)
  - ASTHENIA [None]
  - DIZZINESS [None]
  - MELAENA [None]
  - RECTAL HAEMORRHAGE [None]
